FAERS Safety Report 4935169-3 (Version None)
Quarter: 2006Q1

REPORT INFORMATION
  Report Type: 
  Country: None (occurrence: None)
  Receive Date: 20060303
  Receipt Date: 20060303
  Transmission Date: 20060701
  Serious: Yes (Other)
  Sender: FDA-Public Use
  Company Number: None

PATIENT
  Age: 78 Year
  Sex: Female
  Weight: 63.05 kg

DRUGS (1)
  1. CARDIZEM [Suspect]
     Indication: HYPERTENSION
     Dosage: 180 MG PO BID
     Route: 048

REACTIONS (4)
  - ASTHENIA [None]
  - DIZZINESS [None]
  - FALL [None]
  - PHARMACEUTICAL PRODUCT COMPLAINT [None]
